FAERS Safety Report 14982603 (Version 1)
Quarter: 2018Q2

REPORT INFORMATION
  Report Type: Report from Study
  Country: IT (occurrence: IT)
  Receive Date: 20180607
  Receipt Date: 20180607
  Transmission Date: 20180711
  Serious: Yes (Other)
  Sender: FDA-Public Use
  Company Number: IT-TAKEDA-2018TEU003555

PATIENT
  Age: 40 Year
  Sex: Female

DRUGS (1)
  1. LANSOPRAZOLE. [Suspect]
     Active Substance: LANSOPRAZOLE
     Indication: DRUG ADMINISTRATION ERROR
     Dosage: 15 MG, UNK
     Route: 048
     Dates: start: 20180209, end: 20180209

REACTIONS (4)
  - Medication error [Recovering/Resolving]
  - Dyspnoea [Recovering/Resolving]
  - Skin reaction [Recovering/Resolving]
  - Pruritus [Recovering/Resolving]

NARRATIVE: CASE EVENT DATE: 20180209
